FAERS Safety Report 5271933-1 (Version None)
Quarter: 2007Q1

REPORT INFORMATION
  Report Type: 
  Country: None (occurrence: None)
  Receive Date: 20061214
  Receipt Date: 20061012
  Transmission Date: 20070707
  Serious: Yes (Other)
  Sender: FDA-Public Use
  Company Number: 2006128955

PATIENT
  Sex: Female

DRUGS (2)
  1. BEXTRA [Suspect]
     Dates: start: 20040521
  2. VIOXX [Suspect]
     Dates: start: 20040521

REACTIONS (1)
  - MYOCARDIAL INFARCTION [None]
